FAERS Safety Report 8772878 (Version 4)
Quarter: 2015Q1

REPORT INFORMATION
  Report Type: Spontaneous
  Country: US (occurrence: US)
  Receive Date: 20120907
  Receipt Date: 20150310
  Transmission Date: 20150721
  Serious: Yes (Life-Threatening, Disabling, Congenital Anomaly, Other)
  Sender: FDA-Public Use
  Company Number: US-PFIZER INC-2012218940

PATIENT
  Age: 3 Month
  Sex: Female
  Weight: 3 kg

DRUGS (7)
  1. EFFEXOR [Suspect]
     Active Substance: VENLAFAXINE HYDROCHLORIDE
     Dosage: UNK
     Route: 064
     Dates: start: 2006, end: 2008
  2. EFFEXOR [Suspect]
     Active Substance: VENLAFAXINE HYDROCHLORIDE
     Indication: DEPRESSION
     Dosage: UNK
     Route: 064
     Dates: start: 2003
  3. EFFEXOR [Suspect]
     Active Substance: VENLAFAXINE HYDROCHLORIDE
     Indication: ANXIETY
     Dosage: UNK
     Route: 064
     Dates: start: 2004
  4. EFFEXOR XR [Suspect]
     Active Substance: VENLAFAXINE HYDROCHLORIDE
     Indication: DEPRESSION
     Dosage: 75 MG, DAILY
     Route: 064
     Dates: start: 20030503, end: 20030503
  5. EFFEXOR XR [Suspect]
     Active Substance: VENLAFAXINE HYDROCHLORIDE
     Indication: ANXIETY
     Dosage: 75 MG, DAILY
     Route: 064
     Dates: start: 20040418, end: 200406
  6. PRENATAL VITAMINS [Concomitant]
     Active Substance: VITAMINS
     Dosage: UNK
     Route: 064
  7. VITAMIN C [Concomitant]
     Active Substance: ASCORBIC ACID
     Indication: MALAISE
     Dosage: UNK
     Route: 064

REACTIONS (13)
  - Coarctation of the aorta [Unknown]
  - Hypoplastic left heart syndrome [Unknown]
  - Pulmonary valve incompetence [Unknown]
  - Atrial septal defect [Unknown]
  - Deafness [Unknown]
  - Ventricular septal defect [Unknown]
  - Bradycardia [Unknown]
  - Right ventricular hypertrophy [Unknown]
  - Maternal exposure timing unspecified [Unknown]
  - Mitral valve hypoplasia [Unknown]
  - Tricuspid valve incompetence [Unknown]
  - Nodal rhythm [Unknown]
  - Sinus node dysfunction [Unknown]

NARRATIVE: CASE EVENT DATE: 20040513
